FAERS Safety Report 9921959 (Version 1)
Quarter: 2014Q1

REPORT INFORMATION
  Report Type: Spontaneous
  Country: US (occurrence: US)
  Receive Date: 20140225
  Receipt Date: 20140225
  Transmission Date: 20141002
  Serious: Yes (Other)
  Sender: FDA-Public Use
  Company Number: US-ASTRAZENECA-2014SE11595

PATIENT
  Age: 37 Year
  Sex: Female

DRUGS (18)
  1. TENORMIN [Suspect]
     Dosage: UNKNOWN
     Route: 065
  2. LISINOPRIL [Suspect]
     Route: 048
  3. PRILOSEC [Suspect]
     Route: 048
  4. SEROQUEL XR [Suspect]
     Indication: BIPOLAR DISORDER
     Route: 048
  5. SEROQUEL XR [Suspect]
     Indication: BIPOLAR DISORDER
     Dosage: GENERIC QUETIAPINE
     Route: 065
  6. AMBIEN [Concomitant]
     Dosage: UNKNOWN
  7. ASA [Concomitant]
     Dosage: UNKNOWN
  8. BACLOFEN [Concomitant]
     Dosage: UNKNOWN
  9. COLACE [Concomitant]
     Dosage: UNKNOWN
  10. FIBRICON [Concomitant]
     Dosage: UNKNOWN
  11. GENUVIA [Concomitant]
     Dosage: UNKNOWN
  12. LATUDA [Concomitant]
     Dosage: UNKNOWN
  13. LITHIUM CARBONATE [Concomitant]
     Dosage: UNKNOWN
  14. MOBIC [Concomitant]
     Dosage: UNKNOWN
  15. PARLEDEL [Concomitant]
     Dosage: UNKNOWN
  16. SYNTHROID [Concomitant]
     Dosage: UNKNOWN
  17. ATIVAN [Concomitant]
     Dosage: UNKNOWN
  18. COGENTIN [Concomitant]
     Dosage: UNKNOWN

REACTIONS (1)
  - Convulsion [Unknown]
